FAERS Safety Report 8227765-5 (Version None)
Quarter: 2012Q1

REPORT INFORMATION
  Report Type: 
  Country: None (occurrence: None)
  Receive Date: 20120322
  Receipt Date: 20120313
  Transmission Date: 20120608
  Serious: No
  Sender: FDA-Public Use
  Company Number: US-B.I. PHARMACEUTICALS,INC./RIDGEFIELD-2012-BP-03439BP

PATIENT
  Sex: Female

DRUGS (14)
  1. TENORMIN [Concomitant]
     Indication: HYPERTENSION
     Route: 048
  2. MIRTAZAPINE [Concomitant]
     Indication: DEPRESSION
     Dosage: 30 MG
     Route: 048
  3. KLONOPIN [Concomitant]
     Indication: ANXIETY
     Dosage: 1 MG
     Route: 048
  4. ALTACE [Concomitant]
     Indication: HYPERTENSION
     Route: 048
  5. LIPITOR [Concomitant]
     Indication: BLOOD CHOLESTEROL INCREASED
     Dosage: 20 MG
     Route: 048
  6. VITAMIN D [Concomitant]
     Indication: VITAMIN SUPPLEMENTATION
     Dosage: 4000 MG
     Route: 048
  7. TYLENOL [Concomitant]
     Indication: PAIN
     Route: 048
  8. IMDUR [Concomitant]
     Indication: HYPERTENSION
     Dosage: 30 MG
     Route: 048
  9. CENTRUM FOR WOMEN [Concomitant]
     Indication: SUPPLEMENTATION THERAPY
     Route: 048
  10. SPIRIVA [Suspect]
     Indication: ASTHMA
     Dosage: 18 MCG
     Route: 055
     Dates: start: 20090101, end: 20090101
  11. SPIRIVA [Suspect]
     Route: 055
     Dates: start: 20120101
  12. ASPIRIN [Concomitant]
     Indication: PROPHYLAXIS
     Dosage: 81 MG
     Route: 048
  13. NIFEDIPINE [Concomitant]
     Indication: HYPERTENSION
     Route: 048
  14. ESTER C [Concomitant]
     Indication: SUPPLEMENTATION THERAPY
     Dosage: 1000 MG
     Route: 048

REACTIONS (6)
  - DIARRHOEA [None]
  - INCREASED UPPER AIRWAY SECRETION [None]
  - OROPHARYNGEAL PAIN [None]
  - NASAL DISCHARGE DISCOLOURATION [None]
  - DYSPHONIA [None]
  - APHONIA [None]
